FAERS Safety Report 4685742-5 (Version None)
Quarter: 2005Q2

REPORT INFORMATION
  Report Type: 
  Country: None (occurrence: None)
  Receive Date: 20050608
  Receipt Date: 20050519
  Transmission Date: 20051028
  Serious: Yes (Other)
  Sender: FDA-Public Use
  Company Number: 2005-05-1295

PATIENT
  Age: 82 Year
  Sex: Female

DRUGS (1)
  1. ALBUTEROL [Suspect]
     Dosage: 3 PUFFS ORAL AER INH
     Route: 048

REACTIONS (4)
  - DEMENTIA [None]
  - DIZZINESS [None]
  - DRUG INEFFECTIVE [None]
  - PHARMACEUTICAL PRODUCT COMPLAINT [None]
